FAERS Safety Report 13553044 (Version 3)
Quarter: 2017Q2

REPORT INFORMATION
  Report Type: Spontaneous
  Country: US (occurrence: US)
  Receive Date: 20170517
  Receipt Date: 20170615
  Transmission Date: 20170830
  Serious: No
  Sender: FDA-Public Use
  Company Number: US-PFIZER INC-2017214412

PATIENT
  Age: 79 Year
  Sex: Male
  Weight: 84.37 kg

DRUGS (2)
  1. ZOLOFT [Suspect]
     Active Substance: SERTRALINE HYDROCHLORIDE
     Dosage: UNK [1/2 A PILL]
  2. ZOLOFT [Suspect]
     Active Substance: SERTRALINE HYDROCHLORIDE
     Indication: ANXIETY
     Dosage: 100 MG, 1X/DAY
     Route: 048
     Dates: start: 20170430

REACTIONS (7)
  - Tremor [Unknown]
  - Malaise [Unknown]
  - Nervousness [Unknown]
  - Cystitis [Unknown]
  - Insomnia [Recovered/Resolved]
  - Condition aggravated [Unknown]
  - Diarrhoea [Recovered/Resolved]

NARRATIVE: CASE EVENT DATE: 20170430
